FAERS Safety Report 24078141 (Version 2)
Quarter: 2024Q3

REPORT INFORMATION
  Report Type: Spontaneous
  Country: US (occurrence: US)
  Receive Date: 20240711
  Receipt Date: 20240715
  Transmission Date: 20241017
  Serious: No
  Sender: ROCHE
  Company Number: US-ROCHE-10000020462

PATIENT
  Sex: Female
  Weight: 79.38 kg

DRUGS (1)
  1. XOLAIR [Suspect]
     Active Substance: OMALIZUMAB
     Indication: Product used for unknown indication
     Dosage: DOSE 2X150
     Route: 065

REACTIONS (3)
  - No adverse event [Unknown]
  - Product storage error [Unknown]
  - Product dose omission issue [Unknown]
